FAERS Safety Report 10562525 (Version 1)
Quarter: 2014Q4

REPORT INFORMATION
  Report Type: Spontaneous
  Country: US (occurrence: None)
  Receive Date: 20141103
  Receipt Date: 20141103
  Transmission Date: 20150529
  Serious: No
  Sender: FDA-Public Use
  Company Number: None

PATIENT
  Age: 55 Year
  Sex: Male
  Weight: 91.4 kg

DRUGS (1)
  1. BOCEPREVIR [Suspect]
     Active Substance: BOCEPREVIR
     Indication: HEPATITIS C
     Route: 048
     Dates: start: 20120308, end: 20120331

REACTIONS (5)
  - Urticaria [None]
  - Pruritus [None]
  - Vomiting [None]
  - Lip swelling [None]
  - Nausea [None]

NARRATIVE: CASE EVENT DATE: 20120331
